FAERS Safety Report 20327783 (Version 1)
Quarter: 2022Q1

REPORT INFORMATION
  Report Type: Spontaneous
  Country: US (occurrence: None)
  Receive Date: 20220111
  Receipt Date: 20220111
  Transmission Date: 20220423
  Serious: Yes (Life-Threatening, Hospitalization, Disabling, Other)
  Sender: FDA-Public Use
  Company Number: None

PATIENT
  Age: 58 Year
  Sex: Male
  Weight: 107.55 kg

DRUGS (23)
  1. ENTRESTO [Suspect]
     Active Substance: SACUBITRIL\VALSARTAN
     Indication: Cardiac failure congestive
     Dosage: FREQUENCY : TWICE A DAY;?
     Route: 048
     Dates: start: 20151201, end: 20190610
  2. POTASSIUM [Concomitant]
     Active Substance: POTASSIUM
  3. IRON [Concomitant]
     Active Substance: IRON
  4. BUMETANIDE [Concomitant]
     Active Substance: BUMETANIDE
  5. ALLOPURINOL [Concomitant]
     Active Substance: ALLOPURINOL
  6. ISOSORBIDE [Concomitant]
     Active Substance: ISOSORBIDE
  7. ATORVASTATIN [Concomitant]
     Active Substance: ATORVASTATIN
  8. METOLAZONE [Concomitant]
     Active Substance: METOLAZONE
  9. EPLERENONE [Concomitant]
     Active Substance: EPLERENONE
  10. SERTRALINE [Concomitant]
     Active Substance: SERTRALINE HYDROCHLORIDE
  11. ALBUTEROL [Concomitant]
     Active Substance: ALBUTEROL
  12. ADVAIR DISKUS INHALER [Concomitant]
  13. NOVOLOG [Concomitant]
     Active Substance: INSULIN ASPART
  14. OMNI POD [Concomitant]
  15. ICD [Concomitant]
  16. DEXCOM G6 [Concomitant]
  17. FISH OIL\OMEGA-3 FATTY ACIDS [Concomitant]
     Active Substance: FISH OIL\OMEGA-3 FATTY ACIDS
  18. VITAMIN D3 [Concomitant]
     Active Substance: CHOLECALCIFEROL
  19. PROBOITIS WITH EZYME [Concomitant]
  20. BABAY ASPIRIN [Concomitant]
  21. GARLIC [Concomitant]
     Active Substance: GARLIC
  22. CINNAMON [Concomitant]
     Active Substance: CINNAMON
  23. VITAMIN C [Concomitant]
     Active Substance: ASCORBIC ACID

REACTIONS (9)
  - Near death experience [None]
  - Drug interaction [None]
  - Fall [None]
  - Hemiplegia [None]
  - Coma [None]
  - Blood pressure decreased [None]
  - Balance disorder [None]
  - Head injury [None]
  - Cerebral haemorrhage [None]

NARRATIVE: CASE EVENT DATE: 20171210
